FAERS Safety Report 9462819 (Version 1)
Quarter: 2013Q3

REPORT INFORMATION
  Report Type: Spontaneous
  Country: IR (occurrence: None)
  Receive Date: 20130814
  Receipt Date: 20130814
  Transmission Date: 20140515
  Serious: Yes (Life-Threatening)
  Sender: FDA-Public Use
  Company Number: 2013P1017312

PATIENT
  Age: 11 Year
  Sex: Male

DRUGS (5)
  1. PROPANOLOL [Suspect]
     Dosage: 10 MG ; BID ; 2 WEEKS?
  2. VALPROATE SODIUM [Suspect]
     Indication: PANIC DISORDER
  3. VALPROATE SODIUM [Suspect]
  4. RISPERIDONE [Suspect]
     Indication: PANIC DISORDER
     Dosage: 1 MG; BID  THERAPY DATES UNKNOWN - PRESENT
  5. RISPERIDONE [Suspect]
     Dosage: 1 MG; BID  THERAPY DATES UNKNOWN - PRESENT

REACTIONS (6)
  - Mania [None]
  - Tremor [None]
  - Euphoric mood [None]
  - Restlessness [None]
  - Insomnia [None]
  - Energy increased [None]
